FAERS Safety Report 5498629-5 (Version None)
Quarter: 2007Q4

REPORT INFORMATION
  Report Type: 
  Country: None (occurrence: None)
  Receive Date: 20071024
  Receipt Date: 20071024
  Transmission Date: 20080405
  Serious: Yes (Hospitalization, Other)
  Sender: FDA-Public Use
  Company Number: None

PATIENT
  Age: 30 Year
  Sex: Male
  Weight: 97.5234 kg

DRUGS (2)
  1. LEVAQUIN [Suspect]
     Indication: BACTERIAL INFECTION
     Dosage: 1 750 MG TABLET ONCE PER DAY PO
     Route: 048
     Dates: start: 20071012, end: 20071022
  2. LEVAQUIN [Suspect]
     Indication: TONSILLITIS
     Dosage: 1 750 MG TABLET ONCE PER DAY PO
     Route: 048
     Dates: start: 20071012, end: 20071022

REACTIONS (9)
  - ANXIETY [None]
  - CHEST DISCOMFORT [None]
  - DYSPNOEA [None]
  - FEELING COLD [None]
  - HEART RATE INCREASED [None]
  - HYPERHIDROSIS [None]
  - HYPOAESTHESIA [None]
  - NIGHT SWEATS [None]
  - PANIC ATTACK [None]
